FAERS Safety Report 6802388-0 (Version None)
Quarter: 2010Q2

REPORT INFORMATION
  Report Type: 
  Country: None (occurrence: None)
  Receive Date: 20100628
  Receipt Date: 20100618
  Transmission Date: 20101027
  Serious: No
  Sender: FDA-Public Use
  Company Number: US-BIOGENIDEC-2010BI021106

PATIENT
  Age: 37 Year
  Sex: Female

DRUGS (2)
  1. TYSABRI [Suspect]
     Indication: MULTIPLE SCLEROSIS
     Route: 042
     Dates: start: 20080430, end: 20090520
  2. TYSABRI [Suspect]
     Route: 042
     Dates: start: 20100429

REACTIONS (3)
  - FALL [None]
  - FIBROMYALGIA [None]
  - JOINT INJURY [None]
